FAERS Safety Report 6540606-7 (Version None)
Quarter: 2010Q1

REPORT INFORMATION
  Report Type: 
  Country: None (occurrence: None)
  Receive Date: 20100112
  Receipt Date: 20091022
  Transmission Date: 20100710
  Serious: No
  Sender: FDA-Public Use
  Company Number: 2009-00684

PATIENT
  Age: 29 Year
  Sex: Female
  Weight: 81.1939 kg

DRUGS (2)
  1. COLD REMEDY GEL SWABS [Suspect]
     Dosage: QID - JULY-2008-MAR/APR 2009
  2. PROGERTERONE [Concomitant]

REACTIONS (1)
  - ANOSMIA [None]
